FAERS Safety Report 15236795 (Version 3)
Quarter: 2018Q4

REPORT INFORMATION
  Report Type: Spontaneous
  Country: GR (occurrence: GR)
  Receive Date: 20180803
  Receipt Date: 20180905
  Transmission Date: 20190204
  Serious: Yes (Congenital Anomaly, Other)
  Sender: FDA-Public Use
  Company Number: GR-PFIZER INC-2018305419

PATIENT
  Weight: 3.7 kg

DRUGS (3)
  1. ALDACTONE [Suspect]
     Active Substance: SPIRONOLACTONE
     Dosage: UNK
     Route: 064
  2. PROGESTERONE. [Suspect]
     Active Substance: PROGESTERONE
     Dosage: UNK
     Route: 064
  3. GYNOFEN [Suspect]
     Active Substance: CYPROTERONE ACETATE\ETHINYL ESTRADIOL
     Dosage: UNK
     Route: 064

REACTIONS (7)
  - Cryptorchism [Unknown]
  - Mosaicism [Unknown]
  - Scar [Unknown]
  - Genitalia external ambiguous [Unknown]
  - Maternal exposure during pregnancy [Unknown]
  - Enlarged clitoris [Unknown]
  - Hypospadias [Unknown]
